FAERS Safety Report 25028879 (Version 1)
Quarter: 2025Q1

REPORT INFORMATION
  Report Type: Spontaneous
  Country: CA (occurrence: CA)
  Receive Date: 20250302
  Receipt Date: 20250302
  Transmission Date: 20250408
  Serious: Yes (Disabling, Other)
  Sender: NOVO NORDISK
  Company Number: CA-NOVOPROD-1376628

PATIENT

DRUGS (1)
  1. FIASP [Suspect]
     Active Substance: INSULIN ASPART
     Indication: Type 1 diabetes mellitus

REACTIONS (4)
  - Disability [Unknown]
  - Seizure [Unknown]
  - Extra dose administered [Unknown]
  - Blood glucose increased [Unknown]
